FAERS Safety Report 5057123-6 (Version None)
Quarter: 2006Q3

REPORT INFORMATION
  Report Type: 
  Country: None (occurrence: None)
  Receive Date: 20060721
  Receipt Date: 20051227
  Transmission Date: 20061208
  Serious: No
  Sender: FDA-Public Use
  Company Number: US-AMGEN-KDL163003

PATIENT
  Sex: Male
  Weight: 95.3 kg

DRUGS (1)
  1. PROCRIT [Suspect]
     Indication: ANAEMIA
     Route: 058
     Dates: start: 20051005

REACTIONS (2)
  - CONDITION AGGRAVATED [None]
  - FATIGUE [None]
